FAERS Safety Report 26189149 (Version 1)
Quarter: 2025Q4

REPORT INFORMATION
  Report Type: Spontaneous
  Country: US (occurrence: US)
  Receive Date: 20251223
  Receipt Date: 20251223
  Transmission Date: 20260118
  Serious: Yes (Hospitalization)
  Sender: TEVA
  Company Number: US-TEVA-VS-3404234

PATIENT
  Age: 34 Year
  Sex: Female

DRUGS (2)
  1. CABERGOLINE [Suspect]
     Active Substance: CABERGOLINE
     Indication: Acromegaly
     Route: 065
  2. LANREOTIDE [Concomitant]
     Active Substance: LANREOTIDE
     Indication: Acromegaly

REACTIONS (4)
  - Gambling disorder [Recovered/Resolved]
  - Adrenocortical insufficiency acute [Recovered/Resolved]
  - Off label use [Unknown]
  - Anxiety [Recovered/Resolved]
